FAERS Safety Report 26185259 (Version 1)
Quarter: 2025Q4

REPORT INFORMATION
  Report Type: Spontaneous
  Country: EU (occurrence: EU)
  Receive Date: 20251222
  Receipt Date: 20251222
  Transmission Date: 20260117
  Serious: Yes (Hospitalization)
  Sender: JOHNSON AND JOHNSON
  Company Number: None

PATIENT
  Age: 39 Year
  Sex: Female

DRUGS (2)
  1. TOPIRAMATE [Suspect]
     Active Substance: TOPIRAMATE
     Indication: Migraine prophylaxis
     Dosage: INITIALLY 25, INCREASED TO 100, SLOW INCREASE DUE TO ADVERSE REACTION, CURRENTLY TAPERED AND DISCONTINUED IN AGREEMENT WITH PHYSICIAN.
     Route: 048
  2. Botulinum toxin type A / Botox powder for injection liquid, solution 1 [Concomitant]
     Indication: Prophylaxis
     Dosage: INJECTIONS AT THE HOSPITAL EVERY 12 WEEKS.
     Route: 030
     Dates: start: 2024

REACTIONS (9)
  - Brain fog [Recovering/Resolving]
  - Nausea [Recovering/Resolving]
  - Dizziness [Recovering/Resolving]
  - Weight decreased [Recovering/Resolving]
  - Migraine [Recovering/Resolving]
  - Status migrainosus [Recovering/Resolving]
  - Paraesthesia [Unknown]
  - Cognitive disorder [Unknown]
  - Decreased appetite [Unknown]

NARRATIVE: CASE EVENT DATE: 20250901
